FAERS Safety Report 23958376 (Version 2)
Quarter: 2024Q3

REPORT INFORMATION
  Report Type: Report from Study
  Country: CN (occurrence: CN)
  Receive Date: 20240610
  Receipt Date: 20240905
  Transmission Date: 20241016
  Serious: Yes (Other)
  Sender: PFIZER
  Company Number: CN-TAKEDA-2023TUS065927

PATIENT
  Age: 22 Year
  Sex: Female
  Weight: 45 kg

DRUGS (13)
  1. BRENTUXIMAB VEDOTIN [Suspect]
     Active Substance: BRENTUXIMAB VEDOTIN
     Indication: Hodgkin^s disease
     Dosage: 50 MILLIGRAM, Q2WEEKS
     Route: 042
     Dates: start: 20230622
  2. DOXORUBICIN HYDROCHLORIDE [Suspect]
     Active Substance: DOXORUBICIN HYDROCHLORIDE
     Indication: Hodgkin^s disease
     Dosage: 20 MILLIGRAM, QD
     Route: 042
     Dates: start: 20230622, end: 20230622
  3. VINDESINE SULFATE [Suspect]
     Active Substance: VINDESINE SULFATE
     Indication: Hodgkin^s disease
     Dosage: 4 MILLIGRAM, QD
     Route: 042
     Dates: start: 20230622, end: 20230622
  4. DACARBAZINE [Suspect]
     Active Substance: DACARBAZINE
     Indication: Hodgkin^s disease
     Dosage: 543 MILLIGRAM, QD
     Route: 042
     Dates: start: 20230622, end: 20230622
  5. FLUOXETINE [Concomitant]
     Active Substance: FLUOXETINE HYDROCHLORIDE
     Indication: Prophylaxis
     Dosage: UNK UNK, QD
     Route: 048
     Dates: start: 20230621
  6. LEUCOGEN [Concomitant]
     Active Substance: LEUCOGEN
     Indication: White blood cell count increased
     Dosage: 20 MILLIGRAM, TID
     Route: 048
     Dates: start: 20230621
  7. CEFACLOR [Concomitant]
     Active Substance: CEFACLOR
     Indication: Prophylaxis
     Dosage: 375 MILLIGRAM, BID
     Route: 048
     Dates: start: 20230621
  8. SULFAMETHOXAZOLE [Concomitant]
     Active Substance: SULFAMETHOXAZOLE
     Indication: Prophylaxis
     Dosage: 0.48 GRAM, QD
     Dates: start: 20230621
  9. ACYCLOVIR [Concomitant]
     Active Substance: ACYCLOVIR
     Indication: Prophylaxis
     Dosage: 0.4 GRAM, BID
     Dates: start: 20230621
  10. DEXAMETHASONE [Concomitant]
     Active Substance: DEXAMETHASONE
     Indication: Prophylaxis
     Dosage: 5 MILLIGRAM, QD
     Route: 058
     Dates: start: 20230622
  11. OMEPRAZOLE [Concomitant]
     Active Substance: OMEPRAZOLE
     Indication: Prophylaxis
     Dosage: 20 MILLIGRAM, 1/WEEK
     Route: 048
     Dates: start: 20230622
  12. SODIUM BICARBONATE [Concomitant]
     Active Substance: SODIUM BICARBONATE
     Indication: Urine alkalinisation therapy
     Dosage: 250 MILLILITER, 1/WEEK
     Route: 042
     Dates: start: 20230622
  13. PALONOSETRON HYDROCHLORIDE [Concomitant]
     Active Substance: PALONOSETRON HYDROCHLORIDE
     Indication: Prophylaxis of nausea and vomiting
     Dosage: 0.5 MILLIGRAM, QD
     Route: 048
     Dates: start: 20230622

REACTIONS (6)
  - Hepatic failure [Not Recovered/Not Resolved]
  - Leukopenia [Recovered/Resolved]
  - White blood cell count decreased [Not Recovered/Not Resolved]
  - Neutrophil count decreased [Not Recovered/Not Resolved]
  - Dermatitis [Not Recovered/Not Resolved]
  - Off label use [Recovered/Resolved]

NARRATIVE: CASE EVENT DATE: 20230622
